FAERS Safety Report 24673598 (Version 1)
Quarter: 2024Q4

REPORT INFORMATION
  Report Type: Spontaneous
  Country: IT (occurrence: IT)
  Receive Date: 20241128
  Receipt Date: 20241128
  Transmission Date: 20250114
  Serious: Yes (Hospitalization)
  Sender: ROCHE
  Company Number: None

PATIENT
  Age: 62 Year
  Sex: Female
  Weight: 72 kg

DRUGS (4)
  1. PERJETA [Suspect]
     Active Substance: PERTUZUMAB
     Indication: Invasive breast carcinoma
     Dosage: 1 INFUSIONE OGNI 3 SETTIMANE
     Route: 042
     Dates: start: 20240626, end: 20241022
  2. TRASTUZUMAB [Interacting]
     Active Substance: TRASTUZUMAB
     Indication: Invasive breast carcinoma
     Dosage: 1 INFUSIONE OGNI 3 SETTIMANE
     Route: 065
     Dates: start: 20240311, end: 20241022
  3. LETROZOLE [Concomitant]
     Active Substance: LETROZOLE
     Route: 048
     Dates: start: 202404
  4. DEURSIL [Concomitant]
     Active Substance: URSODIOL
     Route: 048

REACTIONS (3)
  - Ejection fraction decreased [Recovering/Resolving]
  - Respiratory failure [Recovering/Resolving]
  - Asthenia [Recovering/Resolving]

NARRATIVE: CASE EVENT DATE: 20241022
